FAERS Safety Report 4457856-6 (Version None)
Quarter: 2004Q3

REPORT INFORMATION
  Report Type: 
  Country: None (occurrence: None)
  Receive Date: 20040924
  Receipt Date: 20040914
  Transmission Date: 20050211
  Serious: Yes (Other)
  Sender: FDA-Public Use
  Company Number: ES-JNJFOC-20040904777

PATIENT
  Age: 43 Year
  Sex: Male

DRUGS (2)
  1. REMICADE [Suspect]
     Indication: CROHN'S DISEASE
     Dosage: PATIENT HAD RECEIVED 6 INFUSIONS.
     Route: 042
  2. IMUREL [Concomitant]
     Route: 065

REACTIONS (2)
  - INTESTINAL PERFORATION [None]
  - LYMPHOMA [None]
